FAERS Safety Report 11360285 (Version 1)
Quarter: 2015Q3

REPORT INFORMATION
  Report Type: Report from Study
  Country: US (occurrence: US)
  Receive Date: 20150810
  Receipt Date: 20150810
  Transmission Date: 20151125
  Serious: No
  Sender: FDA-Public Use
  Company Number: PHEH2014US003248

PATIENT
  Age: 45 Year
  Sex: Female
  Weight: 74 kg

DRUGS (6)
  1. EXTAVIA [Suspect]
     Active Substance: INTERFERON BETA-1B
     Dosage: 0.25 MG (1ML), QOD
     Route: 058
     Dates: start: 20140217
  2. EXTAVIA [Suspect]
     Active Substance: INTERFERON BETA-1B
     Dosage: 0.25 MG (1ML), QOD
     Route: 058
  3. EXTAVIA [Suspect]
     Active Substance: INTERFERON BETA-1B
     Indication: MULTIPLE SCLEROSIS
     Dosage: 0.25 ML, UNK
     Route: 058
     Dates: start: 201402
  4. EXTAVIA [Suspect]
     Active Substance: INTERFERON BETA-1B
     Dosage: 0.062 MG, QOD
     Route: 058
     Dates: start: 20140212
  5. EXTAVIA [Suspect]
     Active Substance: INTERFERON BETA-1B
     Dosage: 0.75ML/0.187 MG, QOD
     Route: 058
     Dates: start: 20140224
  6. EXTAVIA [Suspect]
     Active Substance: INTERFERON BETA-1B
     Dosage: 0.75ML/0.187 MG, QOD
     Route: 058
     Dates: start: 20140312

REACTIONS (7)
  - Feeling abnormal [Recovered/Resolved]
  - Drug effect decreased [Recovered/Resolved]
  - Injection site haemorrhage [Not Recovered/Not Resolved]
  - Injection site mass [Recovering/Resolving]
  - Injection site bruising [Recovered/Resolved]
  - Temperature intolerance [Recovered/Resolved]
  - Injection site discolouration [Recovered/Resolved]

NARRATIVE: CASE EVENT DATE: 20140214
